FAERS Safety Report 10313313 (Version 1)
Quarter: 2014Q3

REPORT INFORMATION
  Report Type: Not Available
  Country: US (occurrence: US)
  Receive Date: 20140718
  Receipt Date: 20140718
  Transmission Date: 20150326
  Serious: No
  Sender: FDA-Public Use
  Company Number: US-LUPIN PHARMACEUTICALS INC.-E2B_00002065

PATIENT
  Age: 71 Year
  Sex: Male
  Weight: 95.34 kg

DRUGS (2)
  1. CEPHALEXIN CAPSULES 500 MG [Suspect]
     Active Substance: CEPHALEXIN
     Indication: PROPHYLAXIS
     Dates: start: 20140516, end: 20140519
  2. HYDROCODONE + ACETAMINOPHEN 10MG/325MG [Concomitant]
     Indication: PAIN
     Dates: start: 20140516

REACTIONS (3)
  - Product odour abnormal [Unknown]
  - Nausea [Recovered/Resolved]
  - Product taste abnormal [Unknown]

NARRATIVE: CASE EVENT DATE: 20140517
